FAERS Safety Report 8400348-X (Version None)
Quarter: 2012Q2

REPORT INFORMATION
  Report Type: 
  Country: None (occurrence: None)
  Receive Date: 20120531
  Receipt Date: 20120521
  Transmission Date: 20120825
  Serious: Yes (Hospitalization)
  Sender: FDA-Public Use
  Company Number: US-ACTELION-A-NJ2012-65332

PATIENT

DRUGS (4)
  1. EPOPROSTENOL SODIUM [Suspect]
     Dosage: 21.6 NG/KG, PER MIN
     Route: 041
     Dates: start: 20120501
  2. EPOPROSTENOL SODIUM [Suspect]
     Indication: PULMONARY ARTERIAL HYPERTENSION
     Dosage: 21.6 NG/KG, PER MIN
     Route: 041
     Dates: start: 20100527, end: 20120501
  3. ASPIRIN [Concomitant]
  4. SILDENAFIL [Concomitant]

REACTIONS (6)
  - DEVICE INFUSION ISSUE [None]
  - RASH [None]
  - LUNG DISORDER [None]
  - RESPIRATORY FAILURE [None]
  - ENDOTRACHEAL INTUBATION [None]
  - DRUG WITHDRAWAL SYNDROME [None]
